FAERS Safety Report 12635088 (Version 3)
Quarter: 2016Q3

REPORT INFORMATION
  Report Type: Report from Study
  Country: US (occurrence: US)
  Receive Date: 20160809
  Receipt Date: 20160909
  Transmission Date: 20161109
  Serious: Yes (Hospitalization)
  Sender: FDA-Public Use
  Company Number: US-JNJFOC-20160624064

PATIENT
  Age: 60 Year
  Sex: Female
  Weight: 60 kg

DRUGS (5)
  1. IMBRUVICA [Suspect]
     Active Substance: IBRUTINIB
     Indication: MARGINAL ZONE LYMPHOMA
     Route: 048
     Dates: start: 20160613, end: 20160719
  2. IMBRUVICA [Suspect]
     Active Substance: IBRUTINIB
     Indication: MARGINAL ZONE LYMPHOMA
     Route: 048
  3. IMBRUVICA [Suspect]
     Active Substance: IBRUTINIB
     Indication: MARGINAL ZONE LYMPHOMA
     Route: 048
     Dates: start: 201405, end: 20160724
  4. IMBRUVICA [Suspect]
     Active Substance: IBRUTINIB
     Indication: MARGINAL ZONE LYMPHOMA
     Route: 048
     Dates: start: 20160518
  5. ALBUTEROL. [Suspect]
     Active Substance: ALBUTEROL
     Indication: BRONCHITIS
     Route: 065
     Dates: start: 201607

REACTIONS (17)
  - Arrhythmia [Recovered/Resolved]
  - Thrombocytopenia [Unknown]
  - Product use issue [Recovered/Resolved]
  - Malaise [Unknown]
  - Pyrexia [Recovering/Resolving]
  - Night sweats [Unknown]
  - Fatigue [Unknown]
  - Off label use [Recovered/Resolved]
  - Bronchitis [Unknown]
  - Blood count abnormal [Recovering/Resolving]
  - Blood alkaline phosphatase increased [Unknown]
  - Dehydration [Unknown]
  - Tremor [Unknown]
  - Nasopharyngitis [Unknown]
  - Anaemia [Unknown]
  - Nausea [Unknown]
  - Insomnia [Unknown]

NARRATIVE: CASE EVENT DATE: 201405
